FAERS Safety Report 22110670 (Version 4)
Quarter: 2023Q2

REPORT INFORMATION
  Report Type: Report from Study
  Country: IE (occurrence: IE)
  Receive Date: 20230317
  Receipt Date: 20230418
  Transmission Date: 20230721
  Serious: Yes (Hospitalization)
  Sender: FDA-Public Use
  Company Number: IE-JNJFOC-20230322640

PATIENT
  Age: 74 Year
  Sex: Male
  Weight: 109.5 kg

DRUGS (4)
  1. DARATUMUMAB [Suspect]
     Active Substance: DARATUMUMAB
     Indication: Plasma cell myeloma
     Dosage: DATE OF MOST RECENT ADMINISTRATION ON 21-FEB-2023
     Route: 058
     Dates: start: 20221115
  2. DEXAMETHASONE [Suspect]
     Active Substance: DEXAMETHASONE
     Indication: Plasma cell myeloma
     Dosage: DATE OF LATEST ADMINISTRATION ON 28-FEB-2023
     Route: 048
     Dates: start: 20221115
  3. POMALIDOMIDE [Suspect]
     Active Substance: POMALIDOMIDE
     Indication: Plasma cell myeloma
     Dosage: DATE OF LATEST ADMINISTRATION ON 27-FEB-2023
     Route: 048
     Dates: start: 20221115
  4. CYCLOPHOSPHAMIDE [Suspect]
     Active Substance: CYCLOPHOSPHAMIDE
     Indication: Plasma cell myeloma
     Dosage: DATE OF LATEST ADMINISTRATION ON 06-MAR-2023
     Route: 048
     Dates: start: 20221115

REACTIONS (1)
  - COVID-19 [Recovered/Resolved]

NARRATIVE: CASE EVENT DATE: 20230307
